FAERS Safety Report 7988008-0 (Version None)
Quarter: 2011Q4

REPORT INFORMATION
  Report Type: 
  Country: None (occurrence: None)
  Receive Date: 20111216
  Receipt Date: 20111205
  Transmission Date: 20120403
  Serious: Yes (Hospitalization, Other)
  Sender: FDA-Public Use
  Company Number: MX-SANOFI-AVENTIS-2011SA079937

PATIENT
  Sex: Female
  Weight: 61 kg

DRUGS (5)
  1. DICLOFENAC SODIUM [Concomitant]
     Indication: PAIN
     Dosage: IN CASE OF PAIN
     Route: 048
     Dates: start: 20060101
  2. AMARYL [Suspect]
     Route: 048
     Dates: start: 20111125, end: 20111128
  3. AMARYL [Suspect]
     Route: 048
     Dates: start: 20111201, end: 20111204
  4. AMARYL [Suspect]
     Indication: TYPE 2 DIABETES MELLITUS
     Route: 048
     Dates: start: 20060101, end: 20111121
  5. CALCITRIOL [Concomitant]
     Route: 048
     Dates: start: 20060101

REACTIONS (4)
  - FATIGUE [None]
  - FALL [None]
  - BRAIN OEDEMA [None]
  - SOMNOLENCE [None]
